FAERS Safety Report 7545316-5 (Version None)
Quarter: 2011Q2

REPORT INFORMATION
  Report Type: 
  Country: None (occurrence: None)
  Receive Date: 20110613
  Receipt Date: 20110613
  Transmission Date: 20111010
  Serious: No
  Sender: FDA-Public Use
  Company Number: None

PATIENT
  Age: 18 Year
  Sex: Female
  Weight: 52.1637 kg

DRUGS (1)
  1. DROSPERINONE/ETHINYL ESTRADIOL [Suspect]
     Indication: ACNE
     Dosage: 28 TABLETS ONCE DAILY PO
     Route: 048
     Dates: start: 20110518, end: 20110609

REACTIONS (4)
  - HEADACHE [None]
  - WEIGHT INCREASED [None]
  - ABDOMINAL DISTENSION [None]
  - MIGRAINE [None]
